FAERS Safety Report 9772502 (Version 2)
Quarter: 2014Q3

REPORT INFORMATION
  Report Type: Spontaneous
  Country: US (occurrence: None)
  Receive Date: 20131218
  Receipt Date: 20140917
  Transmission Date: 20150326
  Serious: No
  Sender: FDA-Public Use
  Company Number: 2013CT000078

PATIENT
  Age: 65 Year
  Sex: Female
  Weight: 86.18 kg

DRUGS (6)
  1. PERCOCET [Suspect]
     Active Substance: ACETAMINOPHEN\OXYCODONE HYDROCHLORIDE
  2. LISINOPRIL. [Concomitant]
     Active Substance: LISINOPRIL
  3. REQUIP [Concomitant]
     Active Substance: ROPINIROLE HYDROCHLORIDE
  4. KORLYM [Suspect]
     Active Substance: MIFEPRISTONE
     Indication: CUSHING^S SYNDROME
     Dates: start: 201309
  5. LASIX [Concomitant]
     Active Substance: FUROSEMIDE
  6. POTASSIUM /00031402/ [Concomitant]
     Active Substance: POTASSIUM

REACTIONS (7)
  - Blood glucose increased [None]
  - Nausea [None]
  - Fatigue [None]
  - Weight decreased [None]
  - Decreased appetite [None]
  - Oedema peripheral [None]
  - Malaise [None]

NARRATIVE: CASE EVENT DATE: 201309
